FAERS Safety Report 8444726-1 (Version None)
Quarter: 2012Q2

REPORT INFORMATION
  Report Type: 
  Country: None (occurrence: None)
  Receive Date: 20120323
  Receipt Date: 20111110
  Transmission Date: 20120825
  Serious: Yes (Hospitalization)
  Sender: FDA-Public Use
  Company Number: 163-21880-11082323

PATIENT
  Age: 61 Year
  Sex: Male
  Weight: 87.0906 kg

DRUGS (7)
  1. DEXAMETHASONE [Concomitant]
  2. FLOMAX (UNKNOWN) [Concomitant]
  3. STOOL SOFTENER (DOCUSATE SODIUM) (UNKNOWN) [Concomitant]
  4. REVLIMID [Suspect]
     Indication: MULTIPLE MYELOMA
     Dosage: 25 MG, DAILY X 21 DAYS, PO
     Route: 048
     Dates: start: 20110710
  5. NEURONTIN [Concomitant]
  6. VITAMIN B12 (CYANOCOBALAMIN) (UNKNOWN) [Concomitant]
  7. COUMADIN [Concomitant]

REACTIONS (2)
  - PULMONARY EMBOLISM [None]
  - THROMBOSIS [None]
